FAERS Safety Report 25623484 (Version 1)
Quarter: 2025Q3

REPORT INFORMATION
  Report Type: Spontaneous
  Country: JP (occurrence: JP)
  Receive Date: 20250730
  Receipt Date: 20250730
  Transmission Date: 20251020
  Serious: Yes (Disabling)
  Sender: ALEXION PHARMACEUTICALS
  Company Number: JP-ASTRAZENECA-250050524_013020_P_1

PATIENT
  Age: 59 Year
  Sex: Female

DRUGS (1)
  1. TAGRISSO [Suspect]
     Active Substance: OSIMERTINIB
     Indication: Non-small cell lung cancer

REACTIONS (4)
  - Blood creatine phosphokinase increased [Recovered/Resolved]
  - Neuropathy peripheral [Unknown]
  - Movement disorder [Unknown]
  - Wheelchair user [Unknown]
